FAERS Safety Report 16163853 (Version 2)
Quarter: 2020Q4

REPORT INFORMATION
  Report Type: Spontaneous
  Country: US (occurrence: US)
  Receive Date: 20190405
  Receipt Date: 20201209
  Transmission Date: 20210113
  Serious: Yes (Hospitalization)
  Sender: FDA-Public Use
  Company Number: US-JNJFOC-20190401850

PATIENT
  Age: 69 Year
  Sex: Male

DRUGS (1)
  1. XARELTO [Suspect]
     Active Substance: RIVAROXABAN
     Indication: DEEP VEIN THROMBOSIS
     Route: 048
     Dates: start: 20150809, end: 20161129

REACTIONS (1)
  - Haemorrhagic transformation stroke [Recovering/Resolving]

NARRATIVE: CASE EVENT DATE: 201611
